FAERS Safety Report 12490232 (Version 1)
Quarter: 2016Q2

REPORT INFORMATION
  Report Type: Spontaneous
  Country: MX (occurrence: MX)
  Receive Date: 20160622
  Receipt Date: 20160622
  Transmission Date: 20160815
  Serious: Yes (Hospitalization)
  Sender: FDA-Public Use
  Company Number: MX-PFIZER INC-2016299184

PATIENT
  Age: 41 Year
  Sex: Female

DRUGS (5)
  1. DEPO-PROVERA [Suspect]
     Active Substance: MEDROXYPROGESTERONE ACETATE
     Indication: VAGINAL HAEMORRHAGE
     Dosage: 150 MG, WEEKLY
     Dates: start: 20160422
  2. DUPHASTON [Concomitant]
     Active Substance: DYDROGESTERONE
     Dosage: 10 MG, 1X/DAY
     Dates: end: 20160607
  3. GYNOVIN /00062801/ [Concomitant]
     Dosage: 1 DF, 2X/DAY
     Dates: end: 20160607
  4. METRIGEN FUERTE [Concomitant]
     Dosage: UNK, 2X/WEEK
     Dates: end: 20160607
  5. NORDET [Concomitant]
     Dosage: 10 MG, 1X/DAY
     Dates: end: 20160607

REACTIONS (6)
  - Fatigue [Not Recovered/Not Resolved]
  - Vomiting [Not Recovered/Not Resolved]
  - Malaise [Not Recovered/Not Resolved]
  - Neuralgia [Not Recovered/Not Resolved]
  - Vertigo [Not Recovered/Not Resolved]
  - Product use issue [Unknown]

NARRATIVE: CASE EVENT DATE: 20160422
